FAERS Safety Report 7422730-X (Version None)
Quarter: 2011Q2

REPORT INFORMATION
  Report Type: 
  Country: None (occurrence: None)
  Receive Date: 20110419
  Receipt Date: 20110406
  Transmission Date: 20111010
  Serious: Yes (Other)
  Sender: FDA-Public Use
  Company Number: IR-TYCO HEALTHCARE/MALLINCKRODT-T201100764

PATIENT
  Age: 60 Year
  Sex: Female

DRUGS (1)
  1. SODIUM IODIDE I 131 [Suspect]
     Indication: THYROID CANCER
     Dosage: 25.9 GBQ, CUMULATIVE DOSE

REACTIONS (1)
  - NEOPLASM MALIGNANT [None]
